FAERS Safety Report 20660369 (Version 1)
Quarter: 2022Q1

REPORT INFORMATION
  Report Type: Report from Study
  Country: US (occurrence: US)
  Receive Date: 20220331
  Receipt Date: 20220331
  Transmission Date: 20220423
  Serious: Yes (Hospitalization, Other)
  Sender: FDA-Public Use
  Company Number: US-TAKEDA-2022TUS021100

PATIENT
  Age: 65 Year
  Sex: Female

DRUGS (8)
  1. TEDUGLUTIDE [Suspect]
     Active Substance: TEDUGLUTIDE
     Indication: Short-bowel syndrome
     Dosage: 3.63 MILLIGRAM, QD
     Route: 042
     Dates: start: 20150501, end: 20200702
  2. TEDUGLUTIDE [Suspect]
     Active Substance: TEDUGLUTIDE
     Indication: Short-bowel syndrome
     Dosage: 3.63 MILLIGRAM, QD
     Route: 042
     Dates: start: 20150501, end: 20200702
  3. TEDUGLUTIDE [Suspect]
     Active Substance: TEDUGLUTIDE
     Indication: Short-bowel syndrome
     Dosage: 3.63 MILLIGRAM, QD
     Route: 042
     Dates: start: 20150501, end: 20200702
  4. TEDUGLUTIDE [Suspect]
     Active Substance: TEDUGLUTIDE
     Indication: Short-bowel syndrome
     Dosage: 3.63 MILLIGRAM, QD
     Route: 042
     Dates: start: 20150501, end: 20200702
  5. PREDNISONE [Concomitant]
     Active Substance: PREDNISONE
     Indication: COVID-19 pneumonia
     Dosage: 40 MILLIGRAM, QD
     Route: 048
     Dates: start: 20220131, end: 20220205
  6. ALBUTEROL SULFATE [Concomitant]
     Active Substance: ALBUTEROL SULFATE
     Indication: COVID-19 pneumonia
     Dosage: 108 MICROGRAM, QID
     Route: 050
     Dates: start: 20220131, end: 20220214
  7. LEXAPRO [Concomitant]
     Active Substance: ESCITALOPRAM OXALATE
     Indication: Anxiety
     Dosage: 10 MILLIGRAM, QD
     Route: 048
     Dates: start: 20191114
  8. OCTREOTIDE [Concomitant]
     Active Substance: OCTREOTIDE
     Indication: Product used for unknown indication
     Dosage: 50 MICROGRAM, BID
     Route: 058
     Dates: start: 20190215

REACTIONS (1)
  - COVID-19 pneumonia [Recovered/Resolved]

NARRATIVE: CASE EVENT DATE: 20220129
